FAERS Safety Report 23718374 (Version 2)
Quarter: 2024Q2

REPORT INFORMATION
  Report Type: Spontaneous
  Country: IN (occurrence: IN)
  Receive Date: 20240408
  Receipt Date: 20240419
  Transmission Date: 20240716
  Serious: Yes (Death, Other)
  Sender: FDA-Public Use
  Company Number: IN-PFIZER INC-PV202400045769

PATIENT
  Age: 69 Year
  Sex: Male

DRUGS (6)
  1. LORLATINIB [Suspect]
     Active Substance: LORLATINIB
     Indication: Non-small cell lung cancer
     Dosage: 100 MG, 1X/DAY
     Dates: start: 202308
  2. LASIX [Concomitant]
     Active Substance: FUROSEMIDE
     Dosage: 20 MG, 2X/DAY
     Route: 042
  3. TELMIKIND [Concomitant]
     Dosage: UNK, 1X/DAY
  4. HYDROCORT [HYDROCORTISONE] [Concomitant]
     Dosage: 100 MG
     Route: 042
  5. ALDACTONE [Concomitant]
     Active Substance: SPIRONOLACTONE
     Dosage: 25MG P/O BD
  6. FEBUXOSTAT [Concomitant]
     Active Substance: FEBUXOSTAT
     Dosage: 40MG BD

REACTIONS (5)
  - Death [Fatal]
  - Heart rate increased [Unknown]
  - Oedema peripheral [Unknown]
  - Blood pressure increased [Unknown]
  - Oxygen saturation decreased [Unknown]

NARRATIVE: CASE EVENT DATE: 20240312
